FAERS Safety Report 9188733 (Version 2)
Quarter: 2013Q2

REPORT INFORMATION
  Report Type: Spontaneous
  Country: US (occurrence: US)
  Receive Date: 20130325
  Receipt Date: 20130429
  Transmission Date: 20140414
  Serious: Yes (Hospitalization)
  Sender: FDA-Public Use
  Company Number: US-GILEAD-2013-0072263

PATIENT
  Age: 70 Year
  Sex: Female

DRUGS (6)
  1. LETAIRIS [Suspect]
     Indication: PULMONARY HYPERTENSION
     Dosage: 5 MG, UNK
     Route: 048
     Dates: start: 20091222
  2. LETAIRIS [Suspect]
     Indication: PULMONARY FIBROSIS
  3. LETAIRIS [Suspect]
     Indication: RHEUMATOID ARTHRITIS
  4. LETAIRIS [Suspect]
     Indication: CONNECTIVE TISSUE DISORDER
  5. LETAIRIS [Suspect]
     Indication: SJOGREN^S SYNDROME
  6. LETAIRIS [Suspect]
     Indication: SYSTEMIC LUPUS ERYTHEMATOSUS

REACTIONS (1)
  - Supraventricular tachycardia [Unknown]
